FAERS Safety Report 15625504 (Version 3)
Quarter: 2020Q4

REPORT INFORMATION
  Report Type: Other
  Country: IT (occurrence: IT)
  Receive Date: 20181116
  Receipt Date: 20201124
  Transmission Date: 20210113
  Serious: Yes (Hospitalization)
  Sender: FDA-Public Use
  Company Number: IT-ROCHE-2209044

PATIENT
  Age: 68 Year
  Sex: Female
  Weight: 77 kg

DRUGS (11)
  1. DELORAZEPAM [Concomitant]
     Active Substance: DELORAZEPAM
     Dosage: ONGOING = CHECKED
     Dates: start: 20180405
  2. KCL [Concomitant]
     Active Substance: POTASSIUM CHLORIDE
     Dosage: ONGOING = CHECKED
     Dates: start: 20180427
  3. LOPERAMIDE [Concomitant]
     Active Substance: LOPERAMIDE
     Indication: DIARRHOEA
     Dosage: ONGOING = CHECKED
     Dates: start: 20180126
  4. LETROZOLE. [Suspect]
     Active Substance: LETROZOLE
     Indication: BREAST CANCER
     Route: 048
     Dates: start: 20180209
  5. PERTUZUMAB. [Suspect]
     Active Substance: PERTUZUMAB
     Indication: BREAST CANCER
     Dosage: MOST RECENT DOSE PRIOR TO THE EVENT WAS RECEIVED ON 05/01/2018
     Route: 042
     Dates: start: 20170818, end: 20170818
  6. EUTIROX [Concomitant]
     Active Substance: LEVOTHYROXINE SODIUM
     Dosage: ONGOING = CHECKED
  7. TRASTUZUMAB. [Suspect]
     Active Substance: TRASTUZUMAB
     Indication: BREAST CANCER
     Dosage: MOST RECENT DOSE PRIOR TO THE EVENT WAS RECEIVED ON 05/01/2018
     Route: 042
     Dates: start: 20170726, end: 20170726
  8. DOCETAXEL. [Suspect]
     Active Substance: DOCETAXEL
     Indication: BREAST CANCER
     Dosage: MOST RECENT DOSE PRIOR TO THE EVENT WAS RECEIVED ON 06/12/2017
     Route: 042
     Dates: start: 20170726, end: 20170906
  9. SERTRALINE [Concomitant]
     Active Substance: SERTRALINE HYDROCHLORIDE
     Indication: MAJOR DEPRESSION
     Dosage: ONGOING = CHECKED
     Dates: start: 20171113
  10. LOPERAMIDE [Concomitant]
     Active Substance: LOPERAMIDE
     Dosage: ONGOING = CHECKED
     Dates: start: 20170906
  11. PRITOR PLUS [Concomitant]
     Active Substance: TELMISARTAN
     Dosage: ONGOING = CHECKED
     Dates: start: 20100310

REACTIONS (1)
  - Paralysis recurrent laryngeal nerve [Recovered/Resolved]

NARRATIVE: CASE EVENT DATE: 20180910
